FAERS Safety Report 22646583 (Version 1)
Quarter: 2023Q2

REPORT INFORMATION
  Report Type: Spontaneous
  Country: US (occurrence: None)
  Receive Date: 20230625
  Receipt Date: 20230625
  Transmission Date: 20230722
  Serious: Yes (Life-Threatening, Disabling, Other)
  Sender: FDA-Public Use
  Company Number: None

PATIENT
  Age: 65 Year
  Sex: Female
  Weight: 66.22 kg

DRUGS (1)
  1. CHLORAPREP [Suspect]
     Active Substance: CHLORHEXIDINE GLUCONATE\ISOPROPYL ALCOHOL
     Indication: Antibiotic prophylaxis
     Route: 061
     Dates: start: 20230609

REACTIONS (3)
  - Urticaria [None]
  - Application site rash [None]
  - Post procedural constipation [None]

NARRATIVE: CASE EVENT DATE: 20230616
